FAERS Safety Report 8799446 (Version 2)
Quarter: 2012Q4

REPORT INFORMATION
  Report Type: Report from Study
  Country: DE (occurrence: DE)
  Receive Date: 20120919
  Receipt Date: 20121009
  Transmission Date: 20130627
  Serious: Yes (Other)
  Sender: FDA-Public Use
  Company Number: PHHY2012DE080288

PATIENT
  Sex: Female
  Weight: 94 kg

DRUGS (6)
  1. ZOLEDRONATE [Suspect]
     Indication: PROPHYLAXIS
     Dosage: 4 mg, UNK
     Route: 042
     Dates: start: 20110113, end: 20120410
  2. L-THYROXIN [Concomitant]
  3. ASS [Concomitant]
  4. ENALAPRIL [Concomitant]
  5. ALLOPURINOL [Concomitant]
  6. ANASTROZOLE [Concomitant]
     Indication: BREAST CANCER
     Dosage: 1 DF, UNK
     Dates: start: 20110721

REACTIONS (1)
  - Osteonecrosis of jaw [Recovered/Resolved]
